FAERS Safety Report 9774377 (Version 1)
Quarter: 2013Q4

REPORT INFORMATION
  Report Type: Spontaneous
  Country: AT (occurrence: AT)
  Receive Date: 20131220
  Receipt Date: 20131220
  Transmission Date: 20140711
  Serious: Yes (Hospitalization)
  Sender: FDA-Public Use
  Company Number: AT-BAYER-2013-151451

PATIENT
  Age: 45 Year
  Sex: Female

DRUGS (1)
  1. PRIMOVIST [Suspect]
     Indication: NUCLEAR MAGNETIC RESONANCE IMAGING
     Dosage: 1 DF, ONCE 1 AMPULE
     Route: 042
     Dates: start: 20131120, end: 20131120

REACTIONS (4)
  - Dyspnoea [Recovered/Resolved]
  - Generalised erythema [Recovered/Resolved]
  - Convulsion [Recovered/Resolved]
  - Diarrhoea [Recovered/Resolved]
